FAERS Safety Report 19449599 (Version 1)
Quarter: 2021Q2

REPORT INFORMATION
  Report Type: Report from Study
  Country: US (occurrence: US)
  Receive Date: 20210622
  Receipt Date: 20210622
  Transmission Date: 20210717
  Serious: Yes (Death)
  Sender: FDA-Public Use
  Company Number: US-CELGENEUS-USA-20210605556

PATIENT
  Age: 67 Year
  Sex: Male
  Weight: 68.06 kg

DRUGS (2)
  1. POMALIDOMIDE [Suspect]
     Active Substance: POMALIDOMIDE
     Indication: PLASMA CELL MYELOMA
     Dosage: 2 MILLIGRAM
     Route: 048
     Dates: start: 20190531, end: 201906
  2. EMPLICITI [Suspect]
     Active Substance: ELOTUZUMAB
     Indication: ROUTINE HEALTH MAINTENANCE
     Dosage: 800 MILLIGRAM
     Route: 041
     Dates: start: 20190604, end: 20190604

REACTIONS (1)
  - Acute kidney injury [Fatal]

NARRATIVE: CASE EVENT DATE: 20190618
